FAERS Safety Report 7295993-1 (Version None)
Quarter: 2011Q1

REPORT INFORMATION
  Report Type: 
  Country: None (occurrence: None)
  Receive Date: 20110211
  Receipt Date: 20110211
  Transmission Date: 20110831
  Serious: Yes (Other)
  Sender: FDA-Public Use
  Company Number: None

PATIENT
  Age: 33 Year
  Sex: Female
  Weight: 47.6277 kg

DRUGS (1)
  1. LOESTRIN 1.5/30 [Suspect]
     Indication: CONTRACEPTION
     Dosage: NEW LOESTRIN  1 PER DAY PO
     Route: 048
     Dates: start: 20110105, end: 20110127

REACTIONS (2)
  - ANXIETY [None]
  - DEPRESSION [None]
